FAERS Safety Report 15697151 (Version 2)
Quarter: 2018Q4

REPORT INFORMATION
  Report Type: Spontaneous
  Country: US (occurrence: US)
  Receive Date: 20181206
  Receipt Date: 20181213
  Transmission Date: 20190205
  Serious: No
  Sender: FDA-Public Use
  Company Number: US-PFIZER INC-2018497504

PATIENT
  Age: 79 Year
  Sex: Female
  Weight: 66.67 kg

DRUGS (4)
  1. ALAVERT ALLERGY [Suspect]
     Active Substance: LORATADINE
     Indication: RHINORRHOEA
  2. ALAVERT ALLERGY [Suspect]
     Active Substance: LORATADINE
     Indication: NASOPHARYNGITIS
     Dosage: 1 DF, DAILY
     Route: 048
     Dates: start: 20181127
  3. ALAVERT ALLERGY [Suspect]
     Active Substance: LORATADINE
     Indication: HYPERSENSITIVITY
  4. ALAVERT ALLERGY [Suspect]
     Active Substance: LORATADINE
     Indication: OROPHARYNGEAL PAIN

REACTIONS (1)
  - Drug ineffective [Not Recovered/Not Resolved]

NARRATIVE: CASE EVENT DATE: 20181127
